FAERS Safety Report 9401026 (Version 3)
Quarter: 2016Q1

REPORT INFORMATION
  Report Type: Report from Study
  Country: JP (occurrence: JP)
  Receive Date: 20130715
  Receipt Date: 20160122
  Transmission Date: 20160526
  Serious: No
  Sender: FDA-Public Use
  Company Number: JP-GLAXOSMITHKLINE-B0907567A

PATIENT
  Age: 29 Year
  Sex: Male
  Weight: 75 kg

DRUGS (8)
  1. LAMOTRIGINE. [Suspect]
     Active Substance: LAMOTRIGINE
     Indication: IDIOPATHIC GENERALISED EPILEPSY
     Dosage: 25 MG, QD
     Route: 048
     Dates: start: 20121118, end: 20121201
  2. EXCEGRAN [Concomitant]
     Active Substance: ZONISAMIDE
     Indication: IDIOPATHIC GENERALISED EPILEPSY
  3. EXCEGRAN [Concomitant]
     Active Substance: ZONISAMIDE
     Indication: GENERALISED TONIC-CLONIC SEIZURE
     Dosage: 200 MG, BID
     Dates: start: 2007
  4. LAMOTRIGINE. [Suspect]
     Active Substance: LAMOTRIGINE
     Dosage: 50 MG, QD
     Route: 048
     Dates: start: 20121202, end: 20121206
  5. DEPAKENE [Concomitant]
     Active Substance: VALPROIC ACID
     Indication: EPILEPSY
     Dosage: 800 MG, BID
     Route: 048
     Dates: start: 2007
  6. DEPAKENE [Concomitant]
     Active Substance: VALPROIC ACID
     Indication: IDIOPATHIC GENERALISED EPILEPSY
  7. LAMOTRIGINE. [Suspect]
     Active Substance: LAMOTRIGINE
     Indication: GENERALISED TONIC-CLONIC SEIZURE
     Dosage: 25 MG, QOD
     Route: 048
     Dates: start: 20121102, end: 20121117
  8. DEPAKENE [Concomitant]
     Active Substance: VALPROIC ACID
     Indication: GENERALISED TONIC-CLONIC SEIZURE
     Dosage: 1600 MG, 1D

REACTIONS (2)
  - Erythema [Recovered/Resolved]
  - Skin disorder [Recovered/Resolved]

NARRATIVE: CASE EVENT DATE: 20121206
